FAERS Safety Report 7994525-X (Version None)
Quarter: 2011Q4

REPORT INFORMATION
  Report Type: 
  Country: None (occurrence: None)
  Receive Date: 20111220
  Receipt Date: 20111216
  Transmission Date: 20120403
  Serious: Yes (Hospitalization)
  Sender: FDA-Public Use
  Company Number: US-ABBOTT-08P-163-0455095-00

PATIENT
  Sex: Female
  Weight: 77.18 kg

DRUGS (9)
  1. XANAX [Concomitant]
     Indication: ANXIETY
     Route: 048
  2. LORTAB [Concomitant]
     Indication: PAIN
     Dosage: 5/500 3-4 TABS DAILY, PRN
  3. NORVASC [Concomitant]
     Indication: HYPERTENSION
     Route: 048
  4. HUMIRA [Suspect]
     Dates: start: 20080901
  5. METHOTREXATE [Concomitant]
     Indication: RHEUMATOID ARTHRITIS
     Route: 048
  6. LISINOPRIL [Concomitant]
     Indication: HYPERTENSION
     Dosage: 10/12.5MG EVERY MORNING
     Route: 048
  7. HUMIRA [Suspect]
     Indication: RHEUMATOID ARTHRITIS
     Route: 058
     Dates: start: 20070801, end: 20080101
  8. PERCOCET [Concomitant]
     Indication: ARTHRALGIA
     Dosage: 5 MG/325 MG, 2 TABLETS 4X A DAY
     Route: 048
  9. HUMIRA [Suspect]
     Route: 058
     Dates: start: 20080101

REACTIONS (8)
  - RENAL FAILURE [None]
  - URINARY TRACT INFECTION [None]
  - PNEUMONIA [None]
  - DEVICE MALFUNCTION [None]
  - SEPSIS [None]
  - INFLUENZA [None]
  - INJECTION SITE PAIN [None]
  - INCORRECT DOSE ADMINISTERED [None]
